FAERS Safety Report 9613658 (Version 3)
Quarter: 2013Q4

REPORT INFORMATION
  Report Type: Spontaneous
  Country: US (occurrence: US)
  Receive Date: 20131010
  Receipt Date: 20131204
  Transmission Date: 20140711
  Serious: Yes (Other)
  Sender: FDA-Public Use
  Company Number: US-PFIZER INC-2013287943

PATIENT
  Age: 52 Year
  Sex: Female
  Weight: 72.56 kg

DRUGS (5)
  1. XELJANZ [Suspect]
     Indication: RHEUMATOID ARTHRITIS
     Dosage: 5 MG, 2X/DAY
     Route: 048
     Dates: end: 20131121
  2. HUMALOG MIX [Concomitant]
     Dosage: 50/50 KWP
  3. HYDROCHLOROTHIAZIDE WITH TRIAMTERENE [Concomitant]
     Dosage: HYDROCHLOROTHIAZIDE 25/ TRIAMTERENE 37.5
  4. FISH OIL [Concomitant]
     Dosage: UNK
  5. VITAMIN D [Concomitant]
     Dosage: 50000 IU

REACTIONS (4)
  - Rheumatoid arthritis [Unknown]
  - Gait disturbance [Unknown]
  - Joint swelling [Unknown]
  - Pain in extremity [Unknown]
